FAERS Safety Report 8615063-7 (Version None)
Quarter: 2012Q3

REPORT INFORMATION
  Report Type: 
  Country: None (occurrence: None)
  Receive Date: 20120823
  Receipt Date: 20120817
  Transmission Date: 20120928
  Serious: Yes (Hospitalization)
  Sender: FDA-Public Use
  Company Number: PHHY2012EC071648

PATIENT
  Sex: Male

DRUGS (3)
  1. EXFORGE [Suspect]
     Indication: HYPERTENSION
     Dosage: 1 DF (160MG VALS/ 5MG AMLO), DAILY
     Route: 048
     Dates: start: 20020101
  2. NORVASC [Concomitant]
     Dosage: 1 DF, IN THE EVENING
     Dates: start: 20120401
  3. LOPID [Concomitant]
     Dosage: 1 DF, DAILY

REACTIONS (4)
  - CHOLECYSTITIS [None]
  - ABDOMINAL DISTENSION [None]
  - DYSPEPSIA [None]
  - CHOLELITHIASIS [None]
